FAERS Safety Report 22296792 (Version 3)
Quarter: 2023Q2

REPORT INFORMATION
  Report Type: Spontaneous
  Country: US (occurrence: US)
  Receive Date: 20230509
  Receipt Date: 20230523
  Transmission Date: 20230722
  Serious: No
  Sender: FDA-Public Use
  Company Number: US-ALKERMES INC.-ALK-2023-001817

PATIENT
  Age: 47 Year
  Sex: Male

DRUGS (1)
  1. VIVITROL [Suspect]
     Active Substance: NALTREXONE
     Indication: Alcoholism
     Dosage: 380 MILLIGRAM, QMO
     Route: 030
     Dates: start: 20230418

REACTIONS (6)
  - Product preparation issue [Recovered/Resolved]
  - Incorrect route of product administration [Unknown]
  - Injection site reaction [Unknown]
  - Injection site pain [Unknown]
  - Injection site mass [Not Recovered/Not Resolved]
  - Injection site haematoma [Unknown]

NARRATIVE: CASE EVENT DATE: 20230401
